FAERS Safety Report 25193681 (Version 2)
Quarter: 2025Q2

REPORT INFORMATION
  Report Type: Spontaneous
  Country: US (occurrence: US)
  Receive Date: 20250414
  Receipt Date: 20250508
  Transmission Date: 20250716
  Serious: Yes (Death, Hospitalization)
  Sender: ELI LILLY AND COMPANY
  Company Number: US-ELI_LILLY_AND_COMPANY-US202504006713

PATIENT
  Age: 68 Year
  Sex: Male

DRUGS (1)
  1. KISUNLA [Suspect]
     Active Substance: DONANEMAB-AZBT
     Indication: Dementia Alzheimer^s type
     Route: 042
     Dates: start: 20250401

REACTIONS (5)
  - Cytomegalovirus colitis [Fatal]
  - Blood potassium decreased [Unknown]
  - Confusional state [Unknown]
  - Disorientation [Unknown]
  - Headache [Unknown]

NARRATIVE: CASE EVENT DATE: 20250405
